FAERS Safety Report 5530108-9 (Version None)
Quarter: 2007Q4

REPORT INFORMATION
  Report Type: 
  Country: None (occurrence: None)
  Receive Date: 20071130
  Receipt Date: 20071122
  Transmission Date: 20080405
  Serious: Yes (Hospitalization)
  Sender: FDA-Public Use
  Company Number: PHHO2007ES19530

PATIENT
  Age: 62 Year
  Sex: Male
  Weight: 73 kg

DRUGS (2)
  1. TACROLIMUS COMP-TAC+ [Suspect]
     Indication: RENAL TRANSPLANT
     Dosage: 5MG / DAY
     Route: 048
     Dates: start: 20070806, end: 20071019
  2. MYFORTIC [Suspect]
     Indication: RENAL TRANSPLANT
     Dosage: 720 MG / DAILY
     Route: 048
     Dates: start: 20070806, end: 20071019

REACTIONS (4)
  - ARTERIAL BYPASS OPERATION [None]
  - ARTERIAL DISORDER [None]
  - ENDARTERECTOMY [None]
  - PERIPHERAL ISCHAEMIA [None]
